FAERS Safety Report 6933046-X (Version None)
Quarter: 2010Q3

REPORT INFORMATION
  Report Type: 
  Country: None (occurrence: None)
  Receive Date: 20100818
  Receipt Date: 20100818
  Transmission Date: 20110219
  Serious: Yes (Hospitalization)
  Sender: FDA-Public Use
  Company Number: None

PATIENT
  Age: 77 Year
  Sex: Male
  Weight: 62 kg

DRUGS (2)
  1. DRONEDARONE HCL [Suspect]
     Indication: ATRIAL FIBRILLATION
     Dosage: 400 MG BID PO
     Route: 048
     Dates: start: 20091208, end: 20091211
  2. WARFARIN SODIUM [Suspect]
     Dosage: 2.5 MG HS PO
     Route: 048
     Dates: start: 20091207, end: 20091209

REACTIONS (5)
  - DRUG INTERACTION [None]
  - HAEMORRHAGE [None]
  - HYPOPHAGIA [None]
  - IMPLANT SITE HAEMATOMA [None]
  - INTERNATIONAL NORMALISED RATIO INCREASED [None]
